FAERS Safety Report 8474566-9 (Version None)
Quarter: 2012Q2

REPORT INFORMATION
  Report Type: 
  Country: None (occurrence: None)
  Receive Date: 20120628
  Receipt Date: 20120620
  Transmission Date: 20120825
  Serious: Yes (Hospitalization)
  Sender: FDA-Public Use
  Company Number: US-BAYER-2012-053517

PATIENT
  Age: 17 Year
  Sex: Female
  Weight: 63.492 kg

DRUGS (5)
  1. YASMIN [Suspect]
     Dosage: UNK
     Dates: start: 20091004, end: 20100307
  2. AZITHROMYCIN [Concomitant]
     Indication: SINUSITIS
     Dosage: 1 DAILY
     Dates: end: 20100310
  3. ALLEGRA [Concomitant]
     Dosage: 1 DAILY
     Dates: start: 20100310
  4. DROSPIRENONE AND ETHINYL ESTRADIOL [Suspect]
     Dosage: UNK
     Dates: start: 20091004, end: 20100307
  5. IBUPROFEN (ADVIL) [Concomitant]
     Indication: PAIN
     Dosage: UNK
     Dates: start: 20100310

REACTIONS (3)
  - INJURY [None]
  - PAIN [None]
  - DEEP VEIN THROMBOSIS [None]
